FAERS Safety Report 16862822 (Version 2)
Quarter: 2019Q4

REPORT INFORMATION
  Report Type: Spontaneous
  Country: PT (occurrence: PT)
  Receive Date: 20190927
  Receipt Date: 20191204
  Transmission Date: 20200122
  Serious: Yes (Disabling)
  Sender: FDA-Public Use
  Company Number: PT-MYLANLABS-2019M1089714

PATIENT
  Age: 71 Year
  Sex: Female

DRUGS (4)
  1. OLMESARTAN MEDOXOMILO ALTER [Concomitant]
     Indication: HYPERTENSION
     Dosage: UNK
     Route: 048
  2. LIVAZO [Concomitant]
     Active Substance: PITAVASTATIN CALCIUM
     Indication: BLOOD CHOLESTEROL INCREASED
     Dosage: UNK
     Route: 048
  3. SERTRALINA MYLAN [Suspect]
     Active Substance: SERTRALINE HYDROCHLORIDE
     Indication: DEPRESSION
     Dosage: 50 MILLIGRAM, QD
     Route: 048
     Dates: start: 20190201, end: 20190501
  4. ANSILOR [Concomitant]
     Active Substance: LORAZEPAM
     Indication: INSOMNIA
     Dosage: UNK
     Route: 048

REACTIONS (10)
  - Gingival disorder [Unknown]
  - Muscular weakness [Unknown]
  - Oliguria [Unknown]
  - Pruritus [Unknown]
  - Dry mouth [Unknown]
  - Malaise [Unknown]
  - Gait disturbance [Unknown]
  - Ear pain [Unknown]
  - Back pain [Unknown]
  - Taste disorder [Unknown]

NARRATIVE: CASE EVENT DATE: 20190201
